FAERS Safety Report 14013756 (Version 1)
Quarter: 2017Q3

REPORT INFORMATION
  Report Type: Spontaneous
  Country: US (occurrence: US)
  Receive Date: 20170926
  Receipt Date: 20170926
  Transmission Date: 20171128
  Serious: Yes (Hospitalization, Other)
  Sender: FDA-Public Use
  Company Number: US-BRISTOL-MYERS SQUIBB COMPANY-BMS-2017-084207

PATIENT
  Age: 44 Year
  Sex: Female
  Weight: 54.43 kg

DRUGS (3)
  1. OPDIVO [Suspect]
     Active Substance: NIVOLUMAB
     Indication: LUNG NEOPLASM MALIGNANT
     Dosage: 240 MG, UNK
     Route: 042
     Dates: start: 20170511, end: 20170525
  2. OPDIVO [Suspect]
     Active Substance: NIVOLUMAB
     Indication: PANCREATIC CARCINOMA
     Route: 065
  3. TORISEL [Suspect]
     Active Substance: TEMSIROLIMUS
     Indication: ADENOCARCINOMA PANCREAS
     Dosage: 25 MG, UNK
     Route: 042
     Dates: start: 20170420, end: 20170504

REACTIONS (3)
  - Hypothyroidism [Not Recovered/Not Resolved]
  - Respiratory distress [Unknown]
  - Malignant neoplasm progression [Not Recovered/Not Resolved]

NARRATIVE: CASE EVENT DATE: 20170604
